FAERS Safety Report 4877462-9 (Version None)
Quarter: 2006Q1

REPORT INFORMATION
  Report Type: 
  Country: None (occurrence: None)
  Receive Date: 20060109
  Receipt Date: 20060109
  Transmission Date: 20060701
  Serious: Yes (Other)
  Sender: FDA-Public Use
  Company Number: None

PATIENT
  Sex: Female
  Weight: 56.56 kg

DRUGS (3)
  1. SANDOSTATIN [Suspect]
     Indication: NEOPLASM
     Dosage: SEE IMAGE
     Route: 030
     Dates: start: 20051123, end: 20051123
  2. FLUOROURACIL [Concomitant]
  3. MITOMYCIN [Concomitant]

REACTIONS (1)
  - NEUTROPENIA [None]
